FAERS Safety Report 8333135-1 (Version None)
Quarter: 2012Q1

REPORT INFORMATION
  Report Type: 
  Country: None (occurrence: None)
  Receive Date: 20120327
  Receipt Date: 20110202
  Transmission Date: 20120608
  Serious: Yes (Hospitalization)
  Sender: FDA-Public Use
  Company Number: PHHY2011US09161

PATIENT
  Age: 57 Year
  Sex: Male

DRUGS (8)
  1. MOSCONTIN (MORPHINE SULFATE) [Concomitant]
  2. SYNTHROID [Concomitant]
  3. NAPROSYN [Concomitant]
  4. AMITRIPTYLINE HCL [Concomitant]
  5. DILAUDID [Concomitant]
  6. COLACE (DOCUSATE SODIUM) [Concomitant]
  7. GLEEVEC [Suspect]
     Indication: GASTROINTESTINAL STROMAL TUMOUR
     Dosage: 1600 MG, QD
     Dates: start: 20110101
  8. RESTORIL [Concomitant]

REACTIONS (2)
  - OEDEMA PERIPHERAL [None]
  - DEEP VEIN THROMBOSIS [None]
